FAERS Safety Report 18911445 (Version 3)
Quarter: 2021Q1

REPORT INFORMATION
  Report Type: Report from Study
  Country: DE (occurrence: DE)
  Receive Date: 20210218
  Receipt Date: 20210311
  Transmission Date: 20210420
  Serious: Yes (Hospitalization, Other)
  Sender: FDA-Public Use
  Company Number: DE-SHIRE-DE202019672

PATIENT
  Age: 4 Year
  Sex: Male

DRUGS (18)
  1. ADVATE [Suspect]
     Active Substance: ANTIHEMOPHILIC FACTOR, HUMAN RECOMBINANT
     Dosage: 250 INTERNATIONAL UNIT, EVERY 2 DAYS
     Route: 042
     Dates: start: 20170619
  2. ADVATE [Suspect]
     Active Substance: ANTIHEMOPHILIC FACTOR, HUMAN RECOMBINANT
     Dosage: 250 INTERNATIONAL UNIT, EVERY 2 DAYS
     Route: 042
     Dates: start: 20170619
  3. ADVATE [Suspect]
     Active Substance: ANTIHEMOPHILIC FACTOR, HUMAN RECOMBINANT
     Indication: FACTOR VIII DEFICIENCY
     Dosage: 500 INTERNATIONAL UNIT, EVERY 2 DAYS
     Route: 042
     Dates: start: 20200611
  4. ADVATE [Suspect]
     Active Substance: ANTIHEMOPHILIC FACTOR, HUMAN RECOMBINANT
     Dosage: 1000 INTERNATIONAL UNIT
     Route: 042
     Dates: start: 20200614, end: 20200619
  5. ADVATE [Suspect]
     Active Substance: ANTIHEMOPHILIC FACTOR, HUMAN RECOMBINANT
     Dosage: 500 INTERNATIONAL UNIT, EVERY 2 DAYS
     Route: 042
     Dates: start: 20170619
  6. ADVATE [Suspect]
     Active Substance: ANTIHEMOPHILIC FACTOR, HUMAN RECOMBINANT
     Dosage: 500 INTERNATIONAL UNIT, EVERY 2 DAYS
     Route: 042
     Dates: start: 20200715
  7. ADVATE [Suspect]
     Active Substance: ANTIHEMOPHILIC FACTOR, HUMAN RECOMBINANT
     Dosage: 1000 INTERNATIONAL UNIT
     Route: 042
     Dates: start: 20200614, end: 20200619
  8. ADVATE [Suspect]
     Active Substance: ANTIHEMOPHILIC FACTOR, HUMAN RECOMBINANT
     Dosage: 1000 INTERNATIONAL UNIT
     Route: 042
     Dates: start: 20200614, end: 20200619
  9. ADVATE [Suspect]
     Active Substance: ANTIHEMOPHILIC FACTOR, HUMAN RECOMBINANT
     Dosage: 500 INTERNATIONAL UNIT, EVERY 2 DAYS
     Route: 042
     Dates: start: 20200715
  10. ADVATE [Suspect]
     Active Substance: ANTIHEMOPHILIC FACTOR, HUMAN RECOMBINANT
     Dosage: 750 INTERNATIONAL UNIT, 3/WEEK
     Route: 042
     Dates: start: 20170619
  11. ADVATE [Suspect]
     Active Substance: ANTIHEMOPHILIC FACTOR, HUMAN RECOMBINANT
     Dosage: 750 INTERNATIONAL UNIT, 3/WEEK
     Route: 042
     Dates: start: 20170619
  12. ADVATE [Suspect]
     Active Substance: ANTIHEMOPHILIC FACTOR, HUMAN RECOMBINANT
     Dosage: 250 INTERNATIONAL UNIT, EVERY 2 DAYS
     Route: 042
     Dates: start: 20170619
  13. ADVATE [Suspect]
     Active Substance: ANTIHEMOPHILIC FACTOR, HUMAN RECOMBINANT
     Dosage: 750 INTERNATIONAL UNIT, 3/WEEK
     Route: 042
     Dates: start: 20170619
  14. ADVATE [Suspect]
     Active Substance: ANTIHEMOPHILIC FACTOR, HUMAN RECOMBINANT
     Dosage: 500 INTERNATIONAL UNIT, EVERY 2 DAYS
     Route: 042
     Dates: start: 20170619
  15. ADVATE [Suspect]
     Active Substance: ANTIHEMOPHILIC FACTOR, HUMAN RECOMBINANT
     Indication: FACTOR VIII DEFICIENCY
     Dosage: 500 INTERNATIONAL UNIT, EVERY 2 DAYS
     Route: 042
     Dates: start: 20200611
  16. ADVATE [Suspect]
     Active Substance: ANTIHEMOPHILIC FACTOR, HUMAN RECOMBINANT
     Indication: FACTOR VIII DEFICIENCY
     Dosage: 500 INTERNATIONAL UNIT, EVERY 2 DAYS
     Route: 042
     Dates: start: 20200611
  17. ADVATE [Suspect]
     Active Substance: ANTIHEMOPHILIC FACTOR, HUMAN RECOMBINANT
     Dosage: 500 INTERNATIONAL UNIT, EVERY 2 DAYS
     Route: 042
     Dates: start: 20200715
  18. ADVATE [Suspect]
     Active Substance: ANTIHEMOPHILIC FACTOR, HUMAN RECOMBINANT
     Dosage: 500 INTERNATIONAL UNIT, EVERY 2 DAYS
     Route: 042
     Dates: start: 20170619

REACTIONS (8)
  - Fall [Recovered/Resolved]
  - Gait disturbance [Recovering/Resolving]
  - Haematoma [Recovered/Resolved]
  - Accident [Recovered/Resolved]
  - Pyrexia [Recovered/Resolved]
  - Tooth fracture [Unknown]
  - Arthralgia [Recovered/Resolved]
  - Haemarthrosis [Unknown]

NARRATIVE: CASE EVENT DATE: 20200612
